FAERS Safety Report 7506918-5 (Version None)
Quarter: 2011Q2

REPORT INFORMATION
  Report Type: 
  Country: None (occurrence: None)
  Receive Date: 20110526
  Receipt Date: 20110517
  Transmission Date: 20111010
  Serious: Yes (Other)
  Sender: FDA-Public Use
  Company Number: PHFR2011GB02890

PATIENT
  Sex: Female

DRUGS (1)
  1. CLOZARIL [Suspect]
     Indication: SCHIZOPHRENIA
     Route: 048
     Dates: start: 20080215, end: 20110517

REACTIONS (3)
  - LOWER RESPIRATORY TRACT INFECTION [None]
  - TACHYCARDIA [None]
  - CARDIAC DISORDER [None]
